FAERS Safety Report 11645332 (Version 1)
Quarter: 2015Q4

REPORT INFORMATION
  Report Type: Spontaneous
  Country: US (occurrence: US)
  Receive Date: 20151020
  Receipt Date: 20151020
  Transmission Date: 20160304
  Serious: No
  Sender: FDA-Public Use
  Company Number: US-TEVA-601347ACC

PATIENT
  Sex: Female
  Weight: 53.57 kg

DRUGS (2)
  1. PARAGARD T 380A [Suspect]
     Active Substance: COPPER
     Indication: CONTRACEPTION
     Dates: start: 2011, end: 2013
  2. DEPO-PROVERA INJECTION [Concomitant]
     Indication: CONTRACEPTION

REACTIONS (1)
  - Pain [Not Recovered/Not Resolved]
